FAERS Safety Report 16915885 (Version 2)
Quarter: 2020Q4

REPORT INFORMATION
  Report Type: Spontaneous
  Country: US (occurrence: US)
  Receive Date: 20191014
  Receipt Date: 20201002
  Transmission Date: 20210113
  Serious: No
  Sender: FDA-Public Use
  Company Number: US-SAREPTA THERAPEUTICS INC.-SRP2019-000507

PATIENT
  Age: 8 Year
  Sex: Male
  Weight: 28.6 kg

DRUGS (6)
  1. CHOLECALCIFEROL [Concomitant]
     Active Substance: CHOLECALCIFEROL
     Indication: VITAMIN SUPPLEMENTATION
     Dosage: 2000 UNITS, QD
     Route: 048
  2. EXONDYS 51 [Suspect]
     Active Substance: ETEPLIRSEN
     Indication: DUCHENNE MUSCULAR DYSTROPHY
     Dosage: 650 MG (50 MG/ML), WEEKLY
     Route: 042
     Dates: start: 20180227
  3. ANECREAM [Concomitant]
     Active Substance: LIDOCAINE
     Indication: CATHETER SITE INJURY
     Dosage: 4 %, APPLY TO INFUSION SITE 1-2 HOURS PRIOR TO PORT ACCESS
     Route: 061
  4. MELATONIN [Concomitant]
     Active Substance: MELATONIN
     Indication: SLEEP DISORDER
     Dosage: 3 MG, QD IN THE EVENING
     Route: 048
  5. PREDNISONE. [Concomitant]
     Active Substance: PREDNISONE
     Indication: DUCHENNE MUSCULAR DYSTROPHY
     Dosage: 20 MG, QD
     Route: 048
  6. OXYCODONE [Concomitant]
     Active Substance: OXYCODONE
     Indication: PRODUCT USED FOR UNKNOWN INDICATION
     Dosage: 1.25 - 2.5 ML, EVERY 6H AS NEEDED
     Route: 048

REACTIONS (2)
  - Product dose omission issue [Recovered/Resolved]
  - Device issue [Unknown]

NARRATIVE: CASE EVENT DATE: 20190718
